FAERS Safety Report 4436561-6 (Version None)
Quarter: 2004Q3

REPORT INFORMATION
  Report Type: 
  Country: None (occurrence: None)
  Receive Date: 20040830
  Receipt Date: 20040624
  Transmission Date: 20050211
  Serious: No
  Sender: FDA-Public Use
  Company Number: US-BRISTOL-MYERS SQUIBB COMPANY-12624466

PATIENT
  Age: 64 Year
  Sex: Male

DRUGS (3)
  1. ABILIFY [Suspect]
     Dates: start: 20040301
  2. HYPERTENSION MEDICATION [Concomitant]
  3. PROSCAR [Concomitant]

REACTIONS (2)
  - INTRAOCULAR PRESSURE TEST [None]
  - VISUAL FIELD DEFECT [None]
